FAERS Safety Report 10363014 (Version 2)
Quarter: 2014Q3

REPORT INFORMATION
  Report Type: Report from Study
  Country: JP (occurrence: JP)
  Receive Date: 20140805
  Receipt Date: 20140805
  Transmission Date: 20150326
  Serious: Yes (Hospitalization, Other)
  Sender: FDA-Public Use
  Company Number: JP-ASTELLAS-2010JP004032

PATIENT
  Age: 37 Year
  Sex: Female

DRUGS (96)
  1. PREDONINE [Suspect]
     Active Substance: PREDNISOLONE\PREDNISOLONE ACETATE\PREDNISOLONE SODIUM SUCCINATE
     Route: 048
     Dates: start: 20090924, end: 20091025
  2. PREDONINE [Suspect]
     Active Substance: PREDNISOLONE\PREDNISOLONE ACETATE\PREDNISOLONE SODIUM SUCCINATE
     Route: 048
     Dates: start: 20120514, end: 20130120
  3. GASTER [Concomitant]
     Active Substance: FAMOTIDINE
     Indication: PROPHYLAXIS
     Route: 048
     Dates: end: 20131129
  4. DIOVAN [Concomitant]
     Active Substance: VALSARTAN
     Indication: HYPERTENSION
     Route: 048
     Dates: end: 20101212
  5. OPISEZOL-CODEINE [Concomitant]
     Active Substance: HERBALS
     Route: 048
     Dates: start: 20130930, end: 20131004
  6. FERROMIA [Concomitant]
     Active Substance: FERROUS CITRATE
     Indication: PROPHYLAXIS
     Route: 048
     Dates: end: 20120513
  7. MUCODYNE [Concomitant]
     Active Substance: CARBOCYSTEINE
     Indication: NASOPHARYNGITIS
     Route: 048
     Dates: start: 20121022, end: 20121028
  8. METGLUCO [Concomitant]
     Active Substance: METFORMIN HYDROCHLORIDE
     Indication: DIABETES MELLITUS
     Route: 048
     Dates: start: 20110214, end: 20110410
  9. METGLUCO [Concomitant]
     Active Substance: METFORMIN HYDROCHLORIDE
     Indication: DIABETES MELLITUS
     Route: 048
     Dates: start: 20110606
  10. BYETTA [Concomitant]
     Active Substance: EXENATIDE
     Route: 065
  11. BIO-THREE [Concomitant]
     Active Substance: HERBALS
     Indication: GASTROENTERITIS
     Route: 048
     Dates: start: 20130407, end: 20130409
  12. LAXOBERON [Concomitant]
     Active Substance: SODIUM PICOSULFATE
     Indication: PREMEDICATION
     Route: 048
     Dates: start: 20131110, end: 20131110
  13. GLUCAGON. [Concomitant]
     Active Substance: GLUCAGON
     Indication: PREMEDICATION
     Route: 065
     Dates: start: 20130617, end: 20130617
  14. PREDONINE [Suspect]
     Active Substance: PREDNISOLONE\PREDNISOLONE ACETATE\PREDNISOLONE SODIUM SUCCINATE
     Route: 048
     Dates: start: 20080623, end: 20090715
  15. PREDONINE [Suspect]
     Active Substance: PREDNISOLONE\PREDNISOLONE ACETATE\PREDNISOLONE SODIUM SUCCINATE
     Route: 048
     Dates: start: 20090803, end: 20090923
  16. PREDONINE [Suspect]
     Active Substance: PREDNISOLONE\PREDNISOLONE ACETATE\PREDNISOLONE SODIUM SUCCINATE
     Route: 048
     Dates: start: 20131107, end: 20131127
  17. DIOVAN [Concomitant]
     Active Substance: VALSARTAN
     Route: 048
     Dates: start: 20101213
  18. PL GRAN. [Concomitant]
     Active Substance: UNSPECIFIED INGREDIENT
     Indication: NASOPHARYNGITIS
     Dosage: UNK, UNKNOWN FREQ.
     Route: 048
     Dates: start: 20100318, end: 20100324
  19. PL GRAN. [Concomitant]
     Active Substance: UNSPECIFIED INGREDIENT
     Route: 048
     Dates: start: 20121022, end: 20121028
  20. RESPLEN [Concomitant]
     Active Substance: EPRAZINONE
     Indication: NASOPHARYNGITIS
     Route: 048
     Dates: start: 20110324, end: 20110403
  21. CALONAL [Concomitant]
     Active Substance: ACETAMINOPHEN
     Indication: NASOPHARYNGITIS
     Dosage: UNK, AS NEEDED
     Route: 048
     Dates: start: 20121022
  22. CALONAL [Concomitant]
     Active Substance: ACETAMINOPHEN
     Indication: HEADACHE
     Dosage: UNK, AS NEEDED
     Route: 048
     Dates: start: 20130616, end: 20130625
  23. CALONAL [Concomitant]
     Active Substance: ACETAMINOPHEN
     Dosage: UNK, AS NEEDED
     Route: 048
     Dates: start: 20130930
  24. FERROMIA [Concomitant]
     Active Substance: FERROUS CITRATE
     Indication: IRON DEFICIENCY ANAEMIA
     Route: 048
     Dates: start: 20110905
  25. GLIMICRON [Concomitant]
     Active Substance: GLICLAZIDE
     Indication: DIABETES MELLITUS
     Route: 048
  26. GLIMICRON [Concomitant]
     Active Substance: GLICLAZIDE
     Indication: PROPHYLAXIS
  27. METFORMIN [Concomitant]
     Active Substance: METFORMIN HYDROCHLORIDE
     Route: 048
     Dates: start: 20110411, end: 20110605
  28. SOLU-CORTEF [Concomitant]
     Active Substance: HYDROCORTISONE SODIUM SUCCINATE
     Indication: LUPUS NEPHRITIS
     Route: 042
     Dates: start: 20131127, end: 20131127
  29. LAMISIL [Concomitant]
     Active Substance: TERBINAFINE HYDROCHLORIDE
     Indication: VULVOVAGINAL CANDIDIASIS
     Dosage: UNK, ONCE DAILY
     Route: 061
     Dates: start: 20130708
  30. TACROLIMUS. [Suspect]
     Active Substance: TACROLIMUS
     Route: 048
     Dates: start: 20080303, end: 20121121
  31. TACROLIMUS. [Suspect]
     Active Substance: TACROLIMUS
     Route: 048
     Dates: start: 20121122
  32. PREDONINE [Suspect]
     Active Substance: PREDNISOLONE\PREDNISOLONE ACETATE\PREDNISOLONE SODIUM SUCCINATE
     Indication: LUPUS NEPHRITIS
     Route: 048
     Dates: start: 20071210, end: 20080302
  33. PREDONINE [Suspect]
     Active Substance: PREDNISOLONE\PREDNISOLONE ACETATE\PREDNISOLONE SODIUM SUCCINATE
     Route: 048
     Dates: start: 20091116, end: 20120513
  34. PREDONINE [Suspect]
     Active Substance: PREDNISOLONE\PREDNISOLONE ACETATE\PREDNISOLONE SODIUM SUCCINATE
     Route: 048
     Dates: start: 20130722, end: 20131106
  35. CLARITH [Concomitant]
     Active Substance: CLARITHROMYCIN
     Route: 048
     Dates: start: 20130930, end: 20131004
  36. OPISEZOL-CODEINE [Concomitant]
     Active Substance: HERBALS
     Dates: start: 20130415, end: 20130421
  37. ASTOMIN [Concomitant]
     Active Substance: DIMEMORFAN
     Indication: NASOPHARYNGITIS
     Route: 048
     Dates: start: 20120604, end: 20120610
  38. MUCODYNE [Concomitant]
     Active Substance: CARBOCYSTEINE
     Indication: GASTROENTERITIS
     Route: 048
     Dates: start: 20130415, end: 20130421
  39. MUCODYNE [Concomitant]
     Active Substance: CARBOCYSTEINE
     Route: 048
     Dates: start: 20130930, end: 20131004
  40. LOXONIN [Concomitant]
     Active Substance: LOXOPROFEN SODIUM
     Indication: GASTROENTERITIS
     Dosage: UNK UNK, AS NEEDED
     Route: 048
     Dates: start: 20130407, end: 20130409
  41. PLAVIX [Concomitant]
     Active Substance: CLOPIDOGREL BISULFATE
     Indication: ANGINA PECTORIS
     Route: 048
     Dates: start: 20130709, end: 20130717
  42. NIFLEC [Concomitant]
     Active Substance: BICARBONATE ION\POLYETHYLENE GLYCOLS\POTASSIUM CATION\SODIUM CHLORIDE\SODIUM SULFATE ANHYDROUS
     Indication: PREMEDICATION
     Route: 048
     Dates: start: 20131111, end: 20131111
  43. LAXOBERON [Concomitant]
     Active Substance: SODIUM PICOSULFATE
     Indication: PREMEDICATION
     Route: 048
     Dates: start: 20130807, end: 20130807
  44. PREDONINE [Suspect]
     Active Substance: PREDNISOLONE\PREDNISOLONE ACETATE\PREDNISOLONE SODIUM SUCCINATE
     Route: 048
     Dates: start: 20090716, end: 20090802
  45. PREDONINE [Suspect]
     Active Substance: PREDNISOLONE\PREDNISOLONE ACETATE\PREDNISOLONE SODIUM SUCCINATE
     Route: 048
     Dates: start: 20131130
  46. PL GRAN. [Concomitant]
     Active Substance: UNSPECIFIED INGREDIENT
     Route: 048
     Dates: start: 20110324, end: 20110403
  47. CLARITH [Concomitant]
     Active Substance: CLARITHROMYCIN
     Indication: GASTROENTERITIS
     Route: 048
     Dates: start: 20120604, end: 20120610
  48. CLARITH [Concomitant]
     Active Substance: CLARITHROMYCIN
     Route: 048
     Dates: start: 20130415, end: 20130421
  49. ASTOMIN [Concomitant]
     Active Substance: DIMEMORFAN
     Route: 048
     Dates: start: 20121022, end: 20121028
  50. BONALON [Concomitant]
     Active Substance: ALENDRONATE SODIUM
     Indication: PROPHYLAXIS
     Route: 048
     Dates: end: 20110313
  51. ISODINE [Concomitant]
     Active Substance: POVIDONE-IODINE
     Indication: NASOPHARYNGITIS
     Dosage: UNK, UNKNOWN FREQ.
     Route: 061
     Dates: start: 20120604, end: 20120610
  52. METGLUCO [Concomitant]
     Active Substance: METFORMIN HYDROCHLORIDE
     Route: 048
     Dates: end: 20120415
  53. METGLUCO [Concomitant]
     Active Substance: METFORMIN HYDROCHLORIDE
     Route: 048
  54. LOXONIN [Concomitant]
     Active Substance: LOXOPROFEN SODIUM
     Indication: SYSTEMIC LUPUS ERYTHEMATOSUS
     Dosage: UNK UNK, AS NEEDED
     Route: 048
     Dates: end: 20110731
  55. MUCOSTA [Concomitant]
     Active Substance: REBAMIPIDE
     Indication: ARTHRALGIA
     Dosage: UNK UNK, AS NEEDED
     Dates: start: 20131127, end: 20131216
  56. APRICOT KERNEL WATER [Concomitant]
     Active Substance: HERBALS
     Indication: NASOPHARYNGITIS
     Dosage: UNK, UNKNOWN FREQ.
     Route: 048
     Dates: start: 20110817, end: 20110823
  57. BAYASPIRIN [Concomitant]
     Active Substance: ASPIRIN
     Indication: ANGINA PECTORIS
     Route: 048
     Dates: start: 20130709, end: 20130717
  58. NIFLEC [Concomitant]
     Active Substance: BICARBONATE ION\POLYETHYLENE GLYCOLS\POTASSIUM CATION\SODIUM CHLORIDE\SODIUM SULFATE ANHYDROUS
     Indication: PREMEDICATION
     Route: 048
     Dates: start: 20130808, end: 20130808
  59. PREDONINE [Suspect]
     Active Substance: PREDNISOLONE\PREDNISOLONE ACETATE\PREDNISOLONE SODIUM SUCCINATE
     Route: 048
     Dates: start: 20091026, end: 20091115
  60. PL GRAN. [Concomitant]
     Active Substance: UNSPECIFIED INGREDIENT
     Route: 048
     Dates: start: 20120604, end: 20120610
  61. PL GRAN. [Concomitant]
     Active Substance: UNSPECIFIED INGREDIENT
     Route: 048
     Dates: start: 20131111, end: 20131115
  62. CLARITH [Concomitant]
     Active Substance: CLARITHROMYCIN
     Indication: NASOPHARYNGITIS
     Route: 048
     Dates: start: 20100318, end: 20100324
  63. FERROMIA [Concomitant]
     Active Substance: FERROUS CITRATE
     Route: 048
     Dates: start: 20121210, end: 20130722
  64. BYETTA [Concomitant]
     Active Substance: EXENATIDE
     Indication: DIABETES MELLITUS
     Route: 065
     Dates: start: 20110722, end: 20110904
  65. MUCOSTA [Concomitant]
     Active Substance: REBAMIPIDE
     Indication: SYSTEMIC LUPUS ERYTHEMATOSUS
     Dosage: UNK UNK, AS NEEDED
     Route: 048
     Dates: end: 20110731
  66. APRICOT KERNEL WATER [Concomitant]
     Active Substance: HERBALS
     Dosage: ?????
     Dates: start: 20131111, end: 20131115
  67. NEXIUM [Concomitant]
     Active Substance: ESOMEPRAZOLE MAGNESIUM
     Indication: ANGINA PECTORIS
     Dates: start: 20130709, end: 20130717
  68. NEXIUM [Concomitant]
     Active Substance: ESOMEPRAZOLE MAGNESIUM
     Indication: PROPHYLAXIS
  69. GASCON [Concomitant]
     Active Substance: DIMETHICONE
     Indication: PREMEDICATION
     Route: 048
     Dates: start: 20130808, end: 20130808
  70. VEEN D [Concomitant]
     Active Substance: CALCIUM CHLORIDE\DEXTROSE\POTASSIUM CHLORIDE\SODIUM ACETATE\SODIUM CHLORIDE
     Indication: LARGE INTESTINE POLYP
     Route: 065
     Dates: start: 20131111, end: 20131112
  71. PREDONINE [Suspect]
     Active Substance: PREDNISOLONE\PREDNISOLONE ACETATE\PREDNISOLONE SODIUM SUCCINATE
     Route: 048
     Dates: start: 20080303, end: 20080622
  72. PREDONINE [Suspect]
     Active Substance: PREDNISOLONE\PREDNISOLONE ACETATE\PREDNISOLONE SODIUM SUCCINATE
     Route: 048
     Dates: start: 20130121, end: 20130721
  73. OPISEZOL-CODEINE [Concomitant]
     Active Substance: HERBALS
     Indication: NASOPHARYNGITIS
     Route: 048
     Dates: start: 20110328, end: 20110403
  74. OPISEZOL-CODEINE [Concomitant]
     Active Substance: HERBALS
     Indication: GASTROENTERITIS
     Route: 048
     Dates: start: 20120604, end: 20120610
  75. METGLUCO [Concomitant]
     Active Substance: METFORMIN HYDROCHLORIDE
     Route: 048
     Dates: start: 20120416
  76. METGLUCO [Concomitant]
     Active Substance: METFORMIN HYDROCHLORIDE
     Route: 048
  77. METFORMIN [Concomitant]
     Active Substance: METFORMIN HYDROCHLORIDE
     Indication: DIABETES MELLITUS
     Route: 048
     Dates: end: 20110213
  78. TACROLIMUS. [Suspect]
     Active Substance: TACROLIMUS
     Indication: LUPUS NEPHRITIS
     Route: 048
     Dates: start: 20071210, end: 20080302
  79. CALONAL [Concomitant]
     Active Substance: ACETAMINOPHEN
     Indication: SYSTEMIC LUPUS ERYTHEMATOSUS
     Dosage: UNK, AS NEEDED
     Route: 048
     Dates: start: 20110801, end: 20120711
  80. ISODINE [Concomitant]
     Active Substance: POVIDONE-IODINE
     Dosage: UNK, UNKNOWN FREQ.
     Route: 061
     Dates: start: 20130930
  81. GLIMICRON [Concomitant]
     Active Substance: GLICLAZIDE
     Indication: DIABETES MELLITUS
     Route: 048
     Dates: start: 20120910
  82. LOXONIN [Concomitant]
     Active Substance: LOXOPROFEN SODIUM
     Indication: ARTHRALGIA
     Dosage: UNK UNK, AS NEEDED
     Route: 048
     Dates: start: 20131101, end: 20131216
  83. OPISEZOL A [Concomitant]
     Dosage: UNK UNK, UNKNOWN FREQ.
     Route: 048
     Dates: start: 20131111, end: 20131115
  84. SENEGA                             /00122901/ [Concomitant]
     Indication: NASOPHARYNGITIS
     Dosage: UNK UNK, UNKNOWN FREQ.
     Route: 048
     Dates: start: 20110817, end: 20110823
  85. PREDONINE                          /00016203/ [Concomitant]
     Indication: LUPUS NEPHRITIS
     Route: 042
     Dates: start: 20131127, end: 20131127
  86. PREDONINE                          /00016203/ [Concomitant]
     Route: 042
     Dates: start: 20131128, end: 20131129
  87. BIO-THREE [Concomitant]
     Active Substance: HERBALS
     Indication: DIARRHOEA
     Route: 048
     Dates: start: 20130623
  88. NEXIUM [Concomitant]
     Active Substance: ESOMEPRAZOLE MAGNESIUM
     Indication: ARTHRALGIA
     Route: 048
     Dates: start: 20131129
  89. GASCON [Concomitant]
     Active Substance: DIMETHICONE
     Indication: PREMEDICATION
     Route: 048
     Dates: start: 20131111, end: 20131111
  90. BYETTA [Concomitant]
     Active Substance: EXENATIDE
     Indication: DIABETES MELLITUS
     Route: 065
     Dates: start: 20110905
  91. OPISEZOL A [Concomitant]
     Indication: NASOPHARYNGITIS
     Dosage: UNK UNK, UNKNOWN FREQ.
     Route: 048
     Dates: start: 20110817, end: 20110823
  92. SENEGA                             /00122901/ [Concomitant]
     Dosage: UNK UNK, UNKNOWN FREQ.
     Route: 048
     Dates: start: 20131111, end: 20131115
  93. ABSORBINE JR [Concomitant]
     Active Substance: MENTHOL
     Indication: DIARRHOEA
     Route: 048
     Dates: start: 20130823
  94. KEISHIBUKURYOGAN [Concomitant]
     Indication: PREMENSTRUAL SYNDROME
     Route: 048
     Dates: start: 20131021, end: 20131113
  95. VOLTAREN [Concomitant]
     Active Substance: DICLOFENAC SODIUM
     Indication: ARTHRALGIA
     Route: 054
     Dates: start: 20090926
  96. VOLTAREN [Concomitant]
     Active Substance: DICLOFENAC SODIUM
     Indication: ARTHRALGIA
     Route: 054
     Dates: start: 20131127, end: 20131216

REACTIONS (20)
  - Large intestine polyp [Recovered/Resolved]
  - Glycosylated haemoglobin increased [Recovered/Resolved]
  - Vulvovaginal candidiasis [Recovered/Resolved]
  - Gastroenteritis [Recovered/Resolved]
  - Headache [Recovered/Resolved]
  - Glucose urine present [Recovered/Resolved]
  - Arthralgia [Recovering/Resolving]
  - Gastroenteritis [Recovered/Resolved]
  - Iron deficiency anaemia [Recovering/Resolving]
  - Hypertension [Recovering/Resolving]
  - Nasopharyngitis [Recovered/Resolved]
  - Constipation [Recovered/Resolved]
  - Diarrhoea [Recovered/Resolved]
  - Upper respiratory tract infection [Recovered/Resolved]
  - Arthralgia [Recovered/Resolved]
  - Angina pectoris [Recovered/Resolved]
  - Premenstrual syndrome [Not Recovered/Not Resolved]
  - Eczema [Recovered/Resolved]
  - Diabetes mellitus [Recovering/Resolving]
  - Oedema [Recovered/Resolved]

NARRATIVE: CASE EVENT DATE: 20080428
